FAERS Safety Report 5142687-4 (Version None)
Quarter: 2006Q4

REPORT INFORMATION
  Report Type: 
  Country: None (occurrence: None)
  Receive Date: 20061027
  Receipt Date: 20061017
  Transmission Date: 20070319
  Serious: Yes (Hospitalization)
  Sender: FDA-Public Use
  Company Number: US200605004872

PATIENT
  Age: 33 Year
  Sex: Female
  Weight: 108.8 kg

DRUGS (1)
  1. ZYPREXA [Suspect]
     Dosage: SEE IMAGE
     Dates: start: 19980101, end: 20040701

REACTIONS (11)
  - BLOOD CHOLESTEROL ABNORMAL [None]
  - CHOLELITHIASIS [None]
  - GASTRIC ULCER [None]
  - HYPERPHAGIA [None]
  - HYPERTENSION [None]
  - IRRITABLE BOWEL SYNDROME [None]
  - OBESITY [None]
  - OESOPHAGITIS [None]
  - PANCREATITIS [None]
  - POLYDIPSIA [None]
  - THIRST [None]
